FAERS Safety Report 11505428 (Version 1)
Quarter: 2015Q3

REPORT INFORMATION
  Report Type: Spontaneous
  Country: US (occurrence: None)
  Receive Date: 20150914
  Receipt Date: 20150914
  Transmission Date: 20151125
  Serious: Yes (Death, Life-Threatening)
  Sender: FDA-Public Use
  Company Number: None

PATIENT
  Age: 73 Year
  Sex: Male
  Weight: 97.07 kg

DRUGS (1)
  1. TOBI [Suspect]
     Active Substance: TOBRAMYCIN
     Indication: PNEUMONIA PSEUDOMONAL
     Route: 055
     Dates: start: 20150511, end: 20150521

REACTIONS (5)
  - Multi-organ failure [None]
  - Dialysis [None]
  - Nephropathy toxic [None]
  - Drug level increased [None]
  - Acute kidney injury [None]

NARRATIVE: CASE EVENT DATE: 20150511
